FAERS Safety Report 5820901-7 (Version None)
Quarter: 2008Q3

REPORT INFORMATION
  Report Type: 
  Country: None (occurrence: None)
  Receive Date: 20080724
  Receipt Date: 20080721
  Transmission Date: 20090109
  Serious: Yes (Other)
  Sender: FDA-Public Use
  Company Number: ES-WYE-G01890708

PATIENT
  Age: 52 Year
  Sex: Male
  Weight: 72 kg

DRUGS (2)
  1. PIPERACILLIN AND TAZOBACTAM [Suspect]
     Indication: PSEUDOMONAS INFECTION
     Dosage: UNKNOWN
     Route: 042
     Dates: start: 20071018, end: 20071030
  2. UNASYN [Suspect]
     Indication: ACINETOBACTER INFECTION
     Dosage: UNKNOWN
     Route: 042
     Dates: start: 20071019, end: 20071105

REACTIONS (1)
  - SKIN EXFOLIATION [None]
